FAERS Safety Report 6300540-4 (Version None)
Quarter: 2009Q3

REPORT INFORMATION
  Report Type: 
  Country: None (occurrence: None)
  Receive Date: 20090806
  Receipt Date: 20090306
  Transmission Date: 20100115
  Serious: No
  Sender: FDA-Public Use
  Company Number: US-ABBOTT-09P-163-0560947-00

PATIENT
  Sex: Female
  Weight: 45.4 kg

DRUGS (4)
  1. DEPAKOTE ER [Suspect]
     Indication: EPILEPSY
     Dates: start: 20090203
  2. DEPAKOTE ER [Suspect]
     Indication: BIPOLAR DISORDER
     Dates: start: 20000101
  3. DEPAKOTE ER [Suspect]
     Indication: SCHIZOPHRENIA
     Dates: start: 19970101
  4. INVEGA [Suspect]
     Indication: ANTIDEPRESSANT THERAPY

REACTIONS (4)
  - DELUSION [None]
  - FATIGUE [None]
  - OVERDOSE [None]
  - PSYCHIATRIC SYMPTOM [None]
